FAERS Safety Report 11423167 (Version 2)
Quarter: 2015Q3

REPORT INFORMATION
  Report Type: Spontaneous
  Country: US (occurrence: US)
  Receive Date: 20150827
  Receipt Date: 20150924
  Transmission Date: 20151125
  Serious: Yes (Hospitalization, Congenital Anomaly, Other)
  Sender: FDA-Public Use
  Company Number: US-GLAXOSMITHKLINE-US2015GSK121793

PATIENT
  Age: 59 Year
  Sex: Male
  Weight: 84.35 kg

DRUGS (28)
  1. AUGMENTIN [Suspect]
     Active Substance: AMOXICILLIN\CLAVULANATE POTASSIUM
     Indication: PRODUCT USED FOR UNKNOWN INDICATION
  2. TAGAMET [Suspect]
     Active Substance: CIMETIDINE
     Indication: PRODUCT USED FOR UNKNOWN INDICATION
  3. VFEND [Interacting]
     Active Substance: VORICONAZOLE
     Indication: BRONCHOPULMONARY ASPERGILLOSIS
     Dosage: 200 MG, BID
     Route: 048
     Dates: start: 201401
  4. VFEND [Interacting]
     Active Substance: VORICONAZOLE
     Dosage: 200 MG, QD
  5. VIBRAMYCIN [Concomitant]
     Active Substance: DOXYCYCLINE
     Indication: LOWER RESPIRATORY TRACT INFECTION
     Dosage: UNK
     Dates: start: 20141215
  6. PROVENTIL [Concomitant]
     Active Substance: ALBUTEROL
  7. ECOTRIN [Concomitant]
     Active Substance: ASPIRIN
  8. METFORMIN [Concomitant]
     Active Substance: METFORMIN HYDROCHLORIDE
  9. NITROGLYCERINE [Concomitant]
     Active Substance: NITROGLYCERIN
  10. MOBIC [Concomitant]
     Active Substance: MELOXICAM
  11. MORPHINE [Concomitant]
     Active Substance: MORPHINE
  12. LEVOTHYROXINE. [Concomitant]
     Active Substance: LEVOTHYROXINE
  13. ZOSYN [Suspect]
     Active Substance: PIPERACILLIN SODIUM\TAZOBACTAM SODIUM
     Indication: PRODUCT USED FOR UNKNOWN INDICATION
  14. LORAZEPAM. [Concomitant]
     Active Substance: LORAZEPAM
  15. ZYRTEC [Concomitant]
     Active Substance: CETIRIZINE HYDROCHLORIDE
  16. FLONASE [Concomitant]
     Active Substance: FLUTICASONE PROPIONATE
  17. COZAAR [Concomitant]
     Active Substance: LOSARTAN POTASSIUM
  18. CIPROFLOXACIN. [Suspect]
     Active Substance: CIPROFLOXACIN
     Indication: PRODUCT USED FOR UNKNOWN INDICATION
  19. VITAMIN B12 [Concomitant]
     Active Substance: CYANOCOBALAMIN
  20. PRAVACHOL [Interacting]
     Active Substance: PRAVASTATIN SODIUM
     Indication: HYPERLIPIDAEMIA
     Dosage: UNK
     Dates: end: 201412
  21. AZITHROMYCIN [Suspect]
     Active Substance: AZITHROMYCIN ANHYDROUS
     Indication: PRODUCT USED FOR UNKNOWN INDICATION
  22. PROMETHAZINE [Concomitant]
     Active Substance: PROMETHAZINE\PROMETHAZINE HYDROCHLORIDE
  23. OMEPRAZOLE. [Concomitant]
     Active Substance: OMEPRAZOLE
  24. AZULFIDINE [Concomitant]
     Active Substance: SULFASALAZINE
  25. ADVAIR HFA [Suspect]
     Active Substance: FLUTICASONE PROPIONATE\SALMETEROL XINAFOATE
     Indication: PRODUCT USED FOR UNKNOWN INDICATION
  26. OSELTAMIVIR [Concomitant]
     Active Substance: OSELTAMIVIR
     Indication: LOWER RESPIRATORY TRACT INFECTION
     Dosage: UNK
     Dates: start: 20141215
  27. HUMULIN R [Concomitant]
     Active Substance: INSULIN HUMAN
  28. NOVOLIN N [Concomitant]
     Active Substance: INSULIN HUMAN

REACTIONS (25)
  - Cough [Unknown]
  - Nausea [Unknown]
  - Headache [Unknown]
  - Rash [Unknown]
  - Enterovirus test positive [Unknown]
  - Dizziness [Unknown]
  - Vomiting [Unknown]
  - Drug level increased [Unknown]
  - Depression [Unknown]
  - Constipation [Unknown]
  - Dermatitis [Unknown]
  - Dyspnoea [Unknown]
  - Hypomagnesaemia [Recovered/Resolved]
  - Human rhinovirus test positive [Unknown]
  - Viraemia [Unknown]
  - Aspergillus infection [Unknown]
  - Diarrhoea [Unknown]
  - Mental status changes [Unknown]
  - Hallucination [Recovered/Resolved]
  - Drug interaction [Unknown]
  - Palpitations [Not Recovered/Not Resolved]
  - Hypertension [Unknown]
  - Presyncope [Recovered/Resolved]
  - Respiratory tract infection [Unknown]
  - Pyrexia [Unknown]

NARRATIVE: CASE EVENT DATE: 201412
